FAERS Safety Report 4612894-5 (Version None)
Quarter: 2005Q1

REPORT INFORMATION
  Report Type: 
  Country: None (occurrence: None)
  Receive Date: 20050318
  Receipt Date: 20040108
  Transmission Date: 20050727
  Serious: Yes (Hospitalization)
  Sender: FDA-Public Use
  Company Number: FR-GLAXOSMITHKLINE-B0319226A

PATIENT
  Age: 71 Year
  Sex: Female
  Weight: 82 kg

DRUGS (9)
  1. AVANDIA [Suspect]
     Dosage: 4MG PER DAY
     Route: 048
     Dates: start: 20031121, end: 20031229
  2. TAHOR [Concomitant]
     Dosage: 10MG PER DAY
     Route: 048
  3. TRIATEC [Concomitant]
     Dosage: 5MG PER DAY
     Route: 048
  4. LASILIX FAIBLE [Concomitant]
     Dosage: 20MG PER DAY
     Route: 048
  5. GLUCOR [Concomitant]
     Dosage: 200MG PER DAY
     Route: 048
  6. AMARYL [Concomitant]
     Dosage: 6MG PER DAY
     Route: 048
  7. SELOKEN [Concomitant]
     Dosage: 50MG TWICE PER DAY
     Route: 048
  8. KARDEGIC [Concomitant]
     Dosage: 160MG PER DAY
     Route: 048
  9. TEMESTA [Concomitant]
     Dosage: 1MG PER DAY
     Route: 048

REACTIONS (6)
  - ATRIOVENTRICULAR BLOCK FIRST DEGREE [None]
  - CARDIAC FAILURE [None]
  - DYSPNOEA [None]
  - MITRAL VALVE INCOMPETENCE [None]
  - TRICUSPID VALVE INCOMPETENCE [None]
  - WEIGHT INCREASED [None]
